FAERS Safety Report 5707484-7 (Version None)
Quarter: 2008Q2

REPORT INFORMATION
  Report Type: 
  Country: None (occurrence: None)
  Receive Date: 20080416
  Receipt Date: 20080404
  Transmission Date: 20081010
  Serious: Yes (Other)
  Sender: FDA-Public Use
  Company Number: US-PFIZER INC-2008025001

PATIENT
  Sex: Female
  Weight: 74.8 kg

DRUGS (9)
  1. XANAX [Suspect]
     Indication: CARDIAC DISORDER
  2. CALAN [Suspect]
     Indication: BUNDLE BRANCH BLOCK RIGHT
     Route: 048
  3. VERAPAMIL [Suspect]
     Indication: BUNDLE BRANCH BLOCK RIGHT
  4. NITROSTAT [Concomitant]
  5. ISOPTIN [Concomitant]
  6. TENORMIN [Concomitant]
  7. ACETYLSALICYLIC ACID SRT [Concomitant]
  8. NEXIUM [Concomitant]
  9. ANTIBIOTICS [Concomitant]

REACTIONS (19)
  - ANOXIA [None]
  - BLOOD CHOLESTEROL [None]
  - BLOOD POTASSIUM DECREASED [None]
  - BLOOD TRIGLYCERIDES [None]
  - CARDIAC DISCOMFORT [None]
  - CARDIAC VALVE DISEASE [None]
  - CEREBROVASCULAR ACCIDENT [None]
  - DIZZINESS [None]
  - DRUG INEFFECTIVE [None]
  - DRUG INTOLERANCE [None]
  - FLATULENCE [None]
  - HEADACHE [None]
  - HYPERTENSION [None]
  - LOW DENSITY LIPOPROTEIN [None]
  - ORGAN FAILURE [None]
  - PNEUMONIA [None]
  - SKIN ODOUR ABNORMAL [None]
  - THROMBOSIS [None]
  - WEIGHT DECREASED [None]
